FAERS Safety Report 19229095 (Version 1)
Quarter: 2021Q2

REPORT INFORMATION
  Report Type: Spontaneous
  Country: US (occurrence: US)
  Receive Date: 20210507
  Receipt Date: 20210507
  Transmission Date: 20210717
  Serious: Yes (Other)
  Sender: FDA-Public Use
  Company Number: US-SUN PHARMACEUTICAL INDUSTRIES LTD-2021R1-295333

PATIENT
  Sex: Female
  Weight: 1.55 kg

DRUGS (8)
  1. DIGOXIN. [Suspect]
     Active Substance: DIGOXIN
     Indication: TACHYCARDIA FOETAL
     Dosage: UNK (LOAD 500 MICROG X 3 DOSES; MAINTAINANCE 250 MICROG EVERY 12 H)
     Route: 064
  2. SOTALOL. [Suspect]
     Active Substance: SOTALOL
     Indication: TACHYCARDIA FOETAL
     Dosage: 160 MILLIGRAM, BID
     Route: 064
  3. METOPROLOL. [Suspect]
     Active Substance: METOPROLOL
     Indication: TACHYCARDIA FOETAL
     Dosage: 50 MILLIGRAM, DAILY
     Route: 064
  4. AMIODARONE [Suspect]
     Active Substance: AMIODARONE
     Dosage: 600 MILLIGRAM, TID
     Route: 064
  5. AMIODARONE [Suspect]
     Active Substance: AMIODARONE
     Dosage: 800 MILLIGRAM, DAILY
     Route: 064
  6. AMIODARONE [Suspect]
     Active Substance: AMIODARONE
     Indication: TACHYCARDIA FOETAL
     Dosage: 5 MILLIGRAM, SINGLE (INTRAUMBILICAL ROUTE)
     Route: 065
  7. FLECAINIDE ACETATE. [Suspect]
     Active Substance: FLECAINIDE ACETATE
     Indication: TACHYCARDIA FOETAL
     Dosage: 150 MILLIGRAM, BID
     Route: 064
  8. DIGOXIN. [Suspect]
     Active Substance: DIGOXIN
     Dosage: 64 MICROGRAM, SINGLE
     Route: 030

REACTIONS (3)
  - Premature baby [Unknown]
  - Supraventricular tachycardia [Unknown]
  - Foetal exposure during pregnancy [Unknown]
